FAERS Safety Report 12288466 (Version 2)
Quarter: 2016Q2

REPORT INFORMATION
  Report Type: Spontaneous
  Country: JP (occurrence: JP)
  Receive Date: 20160420
  Receipt Date: 20160527
  Transmission Date: 20160815
  Serious: Yes (Hospitalization, Other)
  Sender: FDA-Public Use
  Company Number: JP-009507513-1604JPN012166

PATIENT
  Age: 72 Year
  Sex: Female

DRUGS (21)
  1. MOBIC [Suspect]
     Active Substance: MELOXICAM
     Indication: DESMOID TUMOUR
     Dosage: 10 MG, QD
     Route: 048
     Dates: start: 20151013, end: 20151218
  2. TRESIBA [Concomitant]
     Active Substance: INSULIN DEGLUDEC
     Indication: TYPE 2 DIABETES MELLITUS
     Dosage: 8 UNDER 1000 UNIT, QD
     Route: 051
     Dates: start: 20160224, end: 20160228
  3. NOVORAPID [Concomitant]
     Active Substance: INSULIN ASPART
     Dosage: 4 (UNDER 1000UNIT), QD
     Route: 051
     Dates: start: 20160229, end: 20160303
  4. PREMINENT [Concomitant]
     Active Substance: HYDROCHLOROTHIAZIDE\LOSARTAN POTASSIUM
     Indication: HYPERTENSION
     Dosage: 1 DF, QD
     Route: 048
     Dates: start: 20100702
  5. ZETIA [Concomitant]
     Active Substance: EZETIMIBE
     Indication: HYPERLIPIDAEMIA
     Dosage: 10 MG, QD
     Route: 048
     Dates: start: 20130913
  6. NEXIUM [Concomitant]
     Active Substance: ESOMEPRAZOLE MAGNESIUM
     Indication: ABDOMINAL PAIN UPPER
     Dosage: 20 MG, QD
     Route: 048
     Dates: start: 20151218
  7. NOVORAPID [Concomitant]
     Active Substance: INSULIN ASPART
     Indication: TYPE 2 DIABETES MELLITUS
     Dosage: 10 (UNDER 1000UNIT), QD
     Route: 051
     Dates: start: 20160213, end: 20160303
  8. NOVORAPID [Concomitant]
     Active Substance: INSULIN ASPART
     Dosage: 6 (UNDER 1000UNIT), BID
     Route: 051
     Dates: start: 20160227, end: 20160228
  9. BASEN OD [Concomitant]
     Active Substance: VOGLIBOSE
     Indication: TYPE 2 DIABETES MELLITUS
     Dosage: 1 DF, TID
     Route: 048
     Dates: start: 20160304
  10. SUGLAT [Suspect]
     Active Substance: IPRAGLIFLOZIN L-PROLINE
     Dosage: 50 MG, QD
     Route: 048
     Dates: start: 20160305
  11. LYRICA [Concomitant]
     Active Substance: PREGABALIN
     Dosage: 25 MG, BID
     Route: 048
     Dates: start: 20160115
  12. RIZABEN [Concomitant]
     Active Substance: TRANILAST
     Indication: DESMOID TUMOUR
     Dosage: 100 MG, TID
     Route: 048
     Dates: start: 20151013, end: 20160222
  13. NOVORAPID [Concomitant]
     Active Substance: INSULIN ASPART
     Dosage: 8 (UNDER 1000UNIT), BID
     Route: 051
     Dates: start: 20160213, end: 20160226
  14. JANUVIA [Suspect]
     Active Substance: SITAGLIPTIN PHOSPHATE
     Indication: TYPE 2 DIABETES MELLITUS
     Dosage: 50 MG, QD
     Route: 048
     Dates: start: 20150925, end: 20160209
  15. SUGLAT [Suspect]
     Active Substance: IPRAGLIFLOZIN L-PROLINE
     Indication: TYPE 2 DIABETES MELLITUS
     Dosage: 50 MG, QD
     Route: 048
     Dates: start: 20150515, end: 20160209
  16. GLUBES [Concomitant]
     Active Substance: MITIGLINIDE CALCIUM HYDRATE\VOGLIBOSE
     Indication: TYPE 2 DIABETES MELLITUS
     Dosage: 1 DOSAGE FORM, TID
     Route: 048
     Dates: start: 20140509, end: 20160209
  17. NOVORAPID [Concomitant]
     Active Substance: INSULIN ASPART
     Dosage: 5 (UNDER 1000UNIT), QD
     Route: 051
     Dates: start: 20160229, end: 20160303
  18. JANUVIA [Suspect]
     Active Substance: SITAGLIPTIN PHOSPHATE
     Dosage: 50 MG, QD
     Route: 048
     Dates: start: 20160304
  19. LYRICA [Concomitant]
     Active Substance: PREGABALIN
     Indication: OSTEOARTHRITIS
     Dosage: 75 MG, BID
     Route: 048
     Dates: start: 20140428, end: 20160114
  20. TRESIBA [Concomitant]
     Active Substance: INSULIN DEGLUDEC
     Dosage: 7 UNDER 1000 UNIT, QD
     Route: 051
     Dates: start: 20160229, end: 20160307
  21. GLUFAST [Concomitant]
     Active Substance: MITIGLINIDE
     Indication: TYPE 2 DIABETES MELLITUS
     Dosage: 10 MG, TID
     Route: 048
     Dates: start: 20160304

REACTIONS (3)
  - Desmoid tumour [Recovering/Resolving]
  - Urinary tract infection [Recovering/Resolving]
  - Abdominal pain upper [Recovering/Resolving]

NARRATIVE: CASE EVENT DATE: 20151204
